FAERS Safety Report 4774932-9 (Version None)
Quarter: 2005Q3

REPORT INFORMATION
  Report Type: 
  Country: None (occurrence: None)
  Receive Date: 20050919
  Receipt Date: 20050909
  Transmission Date: 20060218
  Serious: Yes (Hospitalization, Disabling, Other)
  Sender: FDA-Public Use
  Company Number: 2005-05-1458

PATIENT
  Age: 45 Year
  Sex: Male
  Weight: 80 kg

DRUGS (9)
  1. REBETOL [Suspect]
     Indication: HEPATITIS C
     Dosage: 1000-800 MG ORAL; 1000 MG QD ORAL; 800  MG ORAL
     Route: 048
     Dates: start: 20050323, end: 20050501
  2. REBETOL [Suspect]
     Indication: HEPATITIS C
     Dosage: 1000-800 MG ORAL; 1000 MG QD ORAL; 800  MG ORAL
     Route: 048
     Dates: start: 20050323
  3. REBETOL [Suspect]
     Indication: HEPATITIS C
     Dosage: 1000-800 MG ORAL; 1000 MG QD ORAL; 800  MG ORAL
     Route: 048
     Dates: start: 20050601
  4. PEGASYS [Suspect]
     Indication: HEPATITIS C
     Dosage: 180-135UG QW; 180UG QW; 125UG QW
     Dates: start: 20050323, end: 20050101
  5. PEGASYS [Suspect]
     Indication: HEPATITIS C
     Dosage: 180-135UG QW; 180UG QW; 125UG QW
     Dates: start: 20050101
  6. PEGASYS [Suspect]
     Indication: HEPATITIS C
     Dosage: 180-135UG QW; 180UG QW; 125UG QW
     Dates: start: 20050323
  7. PARACETAMOL [Concomitant]
  8. PROZAC [Concomitant]
  9. PANTOPRAZOLE SODIUM [Concomitant]

REACTIONS (5)
  - BACTERIA URINE IDENTIFIED [None]
  - PROSTATIC ABSCESS [None]
  - PROSTATISM [None]
  - STAPHYLOCOCCAL INFECTION [None]
  - URINARY TRACT INFECTION [None]
